FAERS Safety Report 24254466 (Version 1)
Quarter: 2024Q3

REPORT INFORMATION
  Report Type: Spontaneous
  Country: US (occurrence: None)
  Receive Date: 20240826
  Receipt Date: 20240826
  Transmission Date: 20241016
  Serious: No
  Sender: Public
  Company Number: None

PATIENT
  Age: 59 Year
  Sex: Female

DRUGS (1)
  1. XDEMVY [Suspect]
     Active Substance: LOTILANER
     Indication: Acariasis
     Dosage: 1 GTT DROP TWICE A DAY OPHTHALMIC
     Route: 047

REACTIONS (5)
  - Lacrimation increased [None]
  - Eye pain [None]
  - Eye irritation [None]
  - Nausea [None]
  - Headache [None]

NARRATIVE: CASE EVENT DATE: 20240820
